FAERS Safety Report 21454568 (Version 2)
Quarter: 2022Q4

REPORT INFORMATION
  Report Type: Spontaneous
  Country: US (occurrence: US)
  Receive Date: 20221013
  Receipt Date: 20221018
  Transmission Date: 20230113
  Serious: Yes (Hospitalization)
  Sender: FDA-Public Use
  Company Number: US-BRISTOL-MYERS SQUIBB COMPANY-2022-118827

PATIENT
  Age: 52 Year
  Sex: Female

DRUGS (2)
  1. SPRYCEL [Suspect]
     Active Substance: DASATINIB
     Indication: Non-Hodgkin^s lymphoma
     Dosage: DAILY
     Route: 048
     Dates: start: 20220831
  2. SPRYCEL [Suspect]
     Active Substance: DASATINIB
     Dosage: ONCE DAILY
     Route: 048
     Dates: start: 202208

REACTIONS (2)
  - Hospitalisation [Unknown]
  - Off label use [Unknown]
